FAERS Safety Report 9386279 (Version 1)
Quarter: 2013Q3

REPORT INFORMATION
  Report Type: Spontaneous
  Country: CA (occurrence: CA)
  Receive Date: 20130708
  Receipt Date: 20130708
  Transmission Date: 20140515
  Serious: Yes (Hospitalization, Other)
  Sender: FDA-Public Use
  Company Number: CA-AMGEN-CANSP2013047254

PATIENT
  Age: 52 Year
  Sex: Female

DRUGS (3)
  1. ENBREL [Suspect]
     Indication: PSORIASIS
     Dosage: 50 MG, UNK
     Route: 065
     Dates: start: 20070906
  2. DILAUDID [Concomitant]
     Dosage: UNK
  3. MORPHINE [Concomitant]
     Dosage: UNK

REACTIONS (2)
  - Pneumonia necrotising [Recovering/Resolving]
  - Coma [Recovering/Resolving]
